FAERS Safety Report 13102379 (Version 1)
Quarter: 2017Q1

REPORT INFORMATION
  Report Type: Spontaneous
  Country: US (occurrence: US)
  Receive Date: 20170110
  Receipt Date: 20170110
  Transmission Date: 20170428
  Serious: No
  Sender: FDA-Public Use
  Company Number: US-ALLERGAN-1653207US

PATIENT
  Age: 75 Year
  Sex: Male
  Weight: 90.7 kg

DRUGS (1)
  1. PREDNISOLONE ACETATE, 1.0% [Suspect]
     Active Substance: PREDNISOLONE ACETATE
     Indication: CORNEAL DYSTROPHY
     Dosage: 1 GTT, QAM
     Route: 047
     Dates: end: 20160405

REACTIONS (4)
  - Eye discharge [Not Recovered/Not Resolved]
  - Erythema of eyelid [Not Recovered/Not Resolved]
  - Eyelid irritation [Not Recovered/Not Resolved]
  - Glaucoma [Not Recovered/Not Resolved]

NARRATIVE: CASE EVENT DATE: 20160405
